FAERS Safety Report 8868389 (Version 1)
Quarter: 2012Q4

REPORT INFORMATION
  Report Type: 
  Country: FR (occurrence: FR)
  Receive Date: 20121026
  Receipt Date: 20121026
  Transmission Date: 20130627
  Serious: Yes (Death)
  Sender: FDA-Public Use
  Company Number: FR-B.I. PHARMACEUTICALS,INC./RIDGEFIELD-2012-FF-01535FF

PATIENT
  Age: 80 Year
  Sex: Male

DRUGS (2)
  1. PRADAXA [Suspect]
     Indication: ARRHYTHMIA
     Dosage: 220 mg
     Route: 048
     Dates: start: 20120920, end: 20120930
  2. CORDARONE [Suspect]
     Dosage: 200 mg
     Route: 048
     Dates: start: 201203, end: 20120930

REACTIONS (1)
  - Haemorrhagic stroke [Fatal]
